FAERS Safety Report 26051872 (Version 1)
Quarter: 2025Q4

REPORT INFORMATION
  Report Type: Spontaneous
  Country: GB (occurrence: GB)
  Receive Date: 20251117
  Receipt Date: 20251117
  Transmission Date: 20260117
  Serious: Yes (Death, Other)
  Sender: AMGEN
  Company Number: GB-AMGEN-GBRSP2025225575

PATIENT
  Age: 57 Year
  Sex: Male

DRUGS (1)
  1. NPLATE [Suspect]
     Active Substance: ROMIPLOSTIM
     Indication: Product used for unknown indication
     Dosage: 200 MILLIGRAM, QWK
     Route: 065

REACTIONS (4)
  - Cardiac arrest [Fatal]
  - Eosinophilic granulomatosis with polyangiitis [Unknown]
  - Diabetes mellitus [Unknown]
  - Cellulitis [Unknown]

NARRATIVE: CASE EVENT DATE: 20251101
